FAERS Safety Report 5411101-3 (Version None)
Quarter: 2007Q3

REPORT INFORMATION
  Report Type: 
  Country: None (occurrence: None)
  Receive Date: 20070810
  Receipt Date: 20061201
  Transmission Date: 20080115
  Serious: No
  Sender: FDA-Public Use
  Company Number: US-BAXTER-2006BH011591

PATIENT
  Age: 45 Year
  Sex: Male

DRUGS (9)
  1. ADVATE [Suspect]
     Indication: FACTOR VIII DEFICIENCY
     Route: 065
     Dates: start: 20041116
  2. ADVATE [Suspect]
     Route: 065
     Dates: start: 20041116
  3. ADVATE [Suspect]
     Dosage: DOSE UNIT:UNKNOWN
     Route: 065
     Dates: start: 20051114
  4. ADVATE [Suspect]
     Dosage: DOSE UNIT:UNKNOWN
     Route: 065
     Dates: start: 20051114
  5. DILAUDID [Concomitant]
     Route: 048
     Dates: start: 20020916
  6. CELEBREX [Concomitant]
     Route: 048
     Dates: start: 20030425
  7. VALIUM [Concomitant]
     Route: 048
     Dates: start: 20041203, end: 20050216
  8. ICY HOT [Concomitant]
     Dosage: DOSE UNIT:UNKNOWN
     Route: 061
     Dates: start: 20050110, end: 20050209
  9. TRAUMEEL AND PO SUM ON LINEMENT [Concomitant]
     Dosage: DOSE UNIT:UNKNOWN
     Route: 061
     Dates: start: 20050209

REACTIONS (2)
  - HAEMARTHROSIS [None]
  - SKIN DISORDER [None]
